FAERS Safety Report 7582784-7 (Version None)
Quarter: 2011Q2

REPORT INFORMATION
  Report Type: 
  Country: None (occurrence: None)
  Receive Date: 20110630
  Receipt Date: 20110624
  Transmission Date: 20111010
  Serious: Yes (Other)
  Sender: FDA-Public Use
  Company Number: US-PFIZER INC-2011142073

PATIENT
  Sex: Female

DRUGS (2)
  1. VESICARE [Suspect]
     Dosage: UNK
  2. TOVIAZ [Suspect]
     Dosage: UNK

REACTIONS (2)
  - SYSTEMIC LUPUS ERYTHEMATOSUS [None]
  - MEMORY IMPAIRMENT [None]
